FAERS Safety Report 7010217-8 (Version None)
Quarter: 2010Q3

REPORT INFORMATION
  Report Type: 
  Country: None (occurrence: None)
  Receive Date: 20100923
  Receipt Date: 20100913
  Transmission Date: 20110219
  Serious: Yes (Congenital Anomaly)
  Sender: FDA-Public Use
  Company Number: GXKR2010GB10385

PATIENT

DRUGS (2)
  1. CITALOPRAM HYDROBROMIDE [Suspect]
     Route: 064
  2. HEPATITIS B VACCINE [Suspect]
     Route: 064

REACTIONS (7)
  - ABDOMINAL WALL DISORDER [None]
  - DRUG EXPOSURE DURING PREGNANCY [None]
  - ECTOPIA CORDIS [None]
  - HYDROPS FOETALIS [None]
  - LIMB MALFORMATION [None]
  - LIMB REDUCTION DEFECT [None]
  - MATERNAL DRUGS AFFECTING FOETUS [None]
